FAERS Safety Report 23706119 (Version 4)
Quarter: 2024Q2

REPORT INFORMATION
  Report Type: Spontaneous
  Country: US (occurrence: US)
  Receive Date: 20240404
  Receipt Date: 20240518
  Transmission Date: 20240716
  Serious: Yes (Hospitalization, Other)
  Sender: FDA-Public Use
  Company Number: US-AUROBINDO-AUR-APL-2024-015404

PATIENT
  Age: 36 Year
  Sex: Female
  Weight: 66.67 kg

DRUGS (2)
  1. MILI [Suspect]
     Active Substance: ETHINYL ESTRADIOL\NORGESTIMATE
     Indication: Contraception
     Dosage: UNK UNK, ONCE A DAY (21 DAYS AFTER THAT 7 DAYS)
     Route: 048
     Dates: start: 2020, end: 20220525
  2. ASPIRIN [Concomitant]
     Active Substance: ASPIRIN
     Indication: Product used for unknown indication
     Dosage: UNK
     Route: 065

REACTIONS (5)
  - Ischaemic stroke [Recovered/Resolved]
  - Cerebrovascular accident [Recovered/Resolved]
  - Nausea [Recovered/Resolved]
  - Breast tenderness [Recovered/Resolved]
  - Product quality issue [Unknown]

NARRATIVE: CASE EVENT DATE: 20220525
